FAERS Safety Report 7817432-1 (Version None)
Quarter: 2011Q4

REPORT INFORMATION
  Report Type: 
  Country: None (occurrence: None)
  Receive Date: 20111017
  Receipt Date: 20111005
  Transmission Date: 20120403
  Serious: Yes (Other)
  Sender: FDA-Public Use
  Company Number: CA-JNJFOC-20111004383

PATIENT
  Sex: Female
  Weight: 60.9 kg

DRUGS (4)
  1. CITALOPRAM [Concomitant]
  2. PERCOCET [Concomitant]
  3. REMICADE [Suspect]
     Indication: CROHN'S DISEASE
     Route: 042
  4. LORAZEPAM [Concomitant]

REACTIONS (5)
  - VOMITING [None]
  - ABDOMINAL PAIN [None]
  - HEADACHE [None]
  - DIARRHOEA [None]
  - CHILLS [None]
